FAERS Safety Report 22147789 (Version 2)
Quarter: 2023Q2

REPORT INFORMATION
  Report Type: Spontaneous
  Country: US (occurrence: US)
  Receive Date: 20230328
  Receipt Date: 20230420
  Transmission Date: 20230722
  Serious: Yes (Hospitalization, Other)
  Sender: FDA-Public Use
  Company Number: US-RIGEL Pharmaceuticals, INC-2023FOS000321

PATIENT
  Age: 78 Year
  Sex: Male

DRUGS (1)
  1. TAVALISSE [Suspect]
     Active Substance: FOSTAMATINIB
     Indication: Thrombocytopenia
     Dosage: 100 MG, BID
     Route: 048

REACTIONS (6)
  - Seizure [Unknown]
  - Bladder disorder [Unknown]
  - Cerebrovascular accident [Unknown]
  - Off label use [Unknown]
  - Memory impairment [Unknown]
  - General physical health deterioration [Unknown]

NARRATIVE: CASE EVENT DATE: 20230409
